FAERS Safety Report 18762114 (Version 1)
Quarter: 2021Q1

REPORT INFORMATION
  Report Type: Spontaneous
  Country: US (occurrence: US)
  Receive Date: 20210116
  Receipt Date: 20210116
  Transmission Date: 20210419
  Serious: Yes (Life-Threatening)
  Sender: FDA-Public Use
  Company Number: None

PATIENT
  Age: 71 Year
  Sex: Male
  Weight: 91 kg

DRUGS (1)
  1. EPTIFIBATIDE (EPTIFIBATIDE 2MG/ML INJ) [Suspect]
     Active Substance: EPTIFIBATIDE
     Indication: CORONARY ARTERIAL STENT INSERTION
     Dates: start: 20201208, end: 20201208

REACTIONS (2)
  - Thrombocytopenia [None]
  - Platelet transfusion [None]
